FAERS Safety Report 20628973 (Version 1)
Quarter: 2022Q1

REPORT INFORMATION
  Report Type: Spontaneous
  Country: US (occurrence: None)
  Receive Date: 20220323
  Receipt Date: 20220323
  Transmission Date: 20220423
  Serious: Yes (Life-Threatening, Disabling, Other)
  Sender: FDA-Public Use
  Company Number: None

PATIENT
  Age: 45 Year
  Sex: Female
  Weight: 65.25 kg

DRUGS (6)
  1. DEXTROAMPHET SACCHARAT, AMPHET ASPARTATE, DEXTROAMPHET SULFATE AND AMP [Suspect]
     Active Substance: AMPHETAMINE ASPARTATE\AMPHETAMINE SULFATE\DEXTROAMPHETAMINE SACCHARATE\DEXTROAMPHETAMINE SULFATE
     Indication: Attention deficit hyperactivity disorder
     Dosage: OTHER QUANTITY : 60 CAPSULE(S);?
     Route: 048
     Dates: start: 20220301
  2. TOPIRAMATE [Concomitant]
     Active Substance: TOPIRAMATE
  3. lamotragine 125 mg [Concomitant]
  4. MELOXICAM [Concomitant]
     Active Substance: MELOXICAM
  5. clonidine 0.1 mg bid [Concomitant]
  6. Excedrin xr (PRN) [Concomitant]

REACTIONS (6)
  - Somnambulism [None]
  - Drug ineffective [None]
  - Product substitution issue [None]
  - Disturbance in attention [None]
  - Irritability [None]
  - Narcolepsy [None]

NARRATIVE: CASE EVENT DATE: 20220313
